FAERS Safety Report 7435189-3 (Version None)
Quarter: 2011Q2

REPORT INFORMATION
  Report Type: 
  Country: None (occurrence: None)
  Receive Date: 20110425
  Receipt Date: 20110411
  Transmission Date: 20111010
  Serious: Yes (Disabling)
  Sender: FDA-Public Use
  Company Number: PHHY2011EC30640

PATIENT
  Sex: Female

DRUGS (3)
  1. DIOVAN [Suspect]
     Indication: HYPERTENSION
     Dosage: 80 MG, BID
     Route: 048
  2. PREXIGE [Concomitant]
     Indication: ARTHRALGIA
     Dosage: 400 MG, UNK
     Route: 048
  3. NATURAL HERBAL OINTMENTS [Concomitant]

REACTIONS (4)
  - IRRITABLE BOWEL SYNDROME [None]
  - CHRONIC OBSTRUCTIVE PULMONARY DISEASE [None]
  - BACK PAIN [None]
  - ARTHRALGIA [None]
